FAERS Safety Report 8179478-6 (Version None)
Quarter: 2012Q1

REPORT INFORMATION
  Report Type: 
  Country: None (occurrence: None)
  Receive Date: 20120229
  Receipt Date: 20120229
  Transmission Date: 20120608
  Serious: No
  Sender: FDA-Public Use
  Company Number: None

PATIENT
  Age: 87 Year
  Sex: Female
  Weight: 56.6996 kg

DRUGS (1)
  1. AMLODIPINE BESYLATE [Suspect]
     Indication: HYPERTENSION
     Dosage: 2.5 1 TABLET DAILY
     Dates: start: 20120201

REACTIONS (8)
  - SOMNOLENCE [None]
  - DYSPNOEA [None]
  - PRURITUS [None]
  - HEADACHE [None]
  - FATIGUE [None]
  - NAUSEA [None]
  - DIZZINESS [None]
  - SWELLING [None]
